FAERS Safety Report 6269055-6 (Version None)
Quarter: 2009Q3

REPORT INFORMATION
  Report Type: 
  Country: None (occurrence: None)
  Receive Date: 20090715
  Receipt Date: 20090703
  Transmission Date: 20100115
  Serious: Yes (Death, Hospitalization, Other)
  Sender: FDA-Public Use
  Company Number: DE-PFIZER INC-2009218814

PATIENT
  Age: 36 Year

DRUGS (24)
  1. DAUNORUBICIN HCL [Suspect]
     Indication: ACUTE MYELOID LEUKAEMIA
     Dosage: UNK
     Route: 048
     Dates: start: 20090324, end: 20090326
  2. DAUNORUBICIN HCL [Suspect]
     Dosage: UNK
     Dates: start: 20090428
  3. CYTARABINE [Suspect]
     Indication: ACUTE MYELOID LEUKAEMIA
     Dosage: UNK
     Route: 042
     Dates: start: 20090324, end: 20090330
  4. CYTARABINE [Suspect]
     Dosage: UNK
     Dates: start: 20090428
  5. SOBELIN [Suspect]
     Indication: PNEUMONIA PRIMARY ATYPICAL
     Dosage: UNK
     Dates: start: 20090407, end: 20090407
  6. BLINDED THERAPY [Suspect]
     Indication: ACUTE MYELOID LEUKAEMIA
     Dosage: UNK
     Route: 048
     Dates: start: 20090401
  7. FORTECORTIN [Concomitant]
     Dosage: UNK
  8. PANTOZOL [Concomitant]
  9. CIPROBAY [Concomitant]
  10. DIHYDROCODEINE [Concomitant]
  11. DIAZEPAM [Concomitant]
  12. POSACONAZOLE [Concomitant]
  13. RULID [Concomitant]
  14. ALLOPURINOL [Concomitant]
  15. HEPARIN [Concomitant]
  16. PIPRIL [Concomitant]
  17. COMBACTAM [Concomitant]
  18. VANCOMYCIN [Concomitant]
  19. ACICLOVIR [Concomitant]
  20. CEFCIDAL [Concomitant]
  21. ZOVIRAX [Concomitant]
  22. NEUPOGEN [Concomitant]
  23. HUMAN ALBUMIN ^BEHRING^ [Concomitant]
  24. PASPERTIN [Concomitant]

REACTIONS (6)
  - ANAPHYLACTIC REACTION [None]
  - COLITIS [None]
  - DRUG DETOXIFICATION [None]
  - ILEUS [None]
  - NEUTROPENIA [None]
  - PNEUMONIA PRIMARY ATYPICAL [None]
